FAERS Safety Report 12871452 (Version 2)
Quarter: 2016Q4

REPORT INFORMATION
  Report Type: Spontaneous
  Country: FR (occurrence: FR)
  Receive Date: 20161020
  Receipt Date: 20161115
  Transmission Date: 20170207
  Serious: Yes (Hospitalization)
  Sender: FDA-Public Use
  Company Number: FR-BAXTER-2016BAX052392

PATIENT
  Age: 48 Year
  Sex: Female

DRUGS (32)
  1. ENDOXAN 1000 MG, POUDRE POUR SOLUTION INJECTABLE [Suspect]
     Active Substance: CYCLOPHOSPHAMIDE
     Indication: NON-HODGKIN^S LYMPHOMA
     Dosage: FIRST COURSE
     Route: 042
     Dates: start: 20160719
  2. FLUDARA [Suspect]
     Active Substance: FLUDARABINE PHOSPHATE
     Dosage: FIRST COURSE
     Route: 042
     Dates: start: 20160721, end: 20160721
  3. FLUDARA [Suspect]
     Active Substance: FLUDARABINE PHOSPHATE
     Dosage: SECOND COURSE
     Route: 042
     Dates: start: 20160816, end: 20160818
  4. SETOFILM [Suspect]
     Active Substance: ONDANSETRON
     Dosage: SECOND COURSE
     Route: 048
     Dates: start: 20160816, end: 20160816
  5. ENDOXAN 1000 MG, POUDRE POUR SOLUTION INJECTABLE [Suspect]
     Active Substance: CYCLOPHOSPHAMIDE
     Dosage: FIRST COURSE
     Route: 042
     Dates: start: 20160720
  6. ENDOXAN 1000 MG, POUDRE POUR SOLUTION INJECTABLE [Suspect]
     Active Substance: CYCLOPHOSPHAMIDE
     Dosage: SECOND COURSE
     Route: 042
     Dates: start: 20160818, end: 20160818
  7. EMEND [Suspect]
     Active Substance: APREPITANT
     Indication: PROPHYLAXIS OF NAUSEA AND VOMITING
     Dosage: FIRST COURSE
     Route: 048
     Dates: start: 20160719
  8. ENDOXAN 1000 MG, POUDRE POUR SOLUTION INJECTABLE [Suspect]
     Active Substance: CYCLOPHOSPHAMIDE
     Dosage: FIRST COURSE
     Route: 042
     Dates: start: 20160821, end: 20160821
  9. FLUDARA [Suspect]
     Active Substance: FLUDARABINE PHOSPHATE
     Dosage: SECOND COURSE
     Route: 042
     Dates: start: 20160816
  10. ZELITREX [Suspect]
     Active Substance: VALACYCLOVIR HYDROCHLORIDE
     Indication: PROPHYLAXIS
     Route: 048
     Dates: start: 20160719, end: 20160903
  11. MABTHERA [Suspect]
     Active Substance: RITUXIMAB
     Dosage: SECOND COURSE
     Route: 042
     Dates: start: 20160816, end: 20160816
  12. SOLUPRED [Suspect]
     Active Substance: PREDNISOLONE
     Dosage: FIRST COURSE
     Route: 048
     Dates: start: 20160720
  13. SETOFILM [Suspect]
     Active Substance: ONDANSETRON
     Indication: PRODUCT USED FOR UNKNOWN INDICATION
     Dosage: FIRST COURSE
     Route: 048
     Dates: start: 20160719, end: 20160719
  14. SOLUPRED [Suspect]
     Active Substance: PREDNISOLONE
     Dosage: SECOND COURSE
     Route: 048
     Dates: start: 20160817
  15. SOLUPRED [Suspect]
     Active Substance: PREDNISOLONE
     Dosage: SECOND COURSE
     Route: 048
     Dates: start: 20160818, end: 20160818
  16. POLARAMINE [Suspect]
     Active Substance: DEXCHLORPHENIRAMINE MALEATE
     Dosage: SECOND COURSE
     Route: 048
     Dates: start: 20160816, end: 20160816
  17. FLUDARA [Suspect]
     Active Substance: FLUDARABINE PHOSPHATE
     Indication: NON-HODGKIN^S LYMPHOMA
     Dosage: FIRST COURSE
     Route: 042
     Dates: start: 20160719
  18. SOLUPRED [Suspect]
     Active Substance: PREDNISOLONE
     Dosage: SECOND COURSE
     Route: 048
     Dates: start: 20160816
  19. POLARAMINE [Suspect]
     Active Substance: DEXCHLORPHENIRAMINE MALEATE
     Indication: PRODUCT USED FOR UNKNOWN INDICATION
     Dosage: FIRST COURSE
     Route: 048
     Dates: start: 20160719, end: 20160719
  20. NEUPOGEN [Suspect]
     Active Substance: FILGRASTIM
     Indication: PRODUCT USED FOR UNKNOWN INDICATION
     Route: 065
     Dates: start: 20160825
  21. FLUDARA [Suspect]
     Active Substance: FLUDARABINE PHOSPHATE
     Dosage: FIRST COURSE
     Route: 042
     Dates: start: 20160720
  22. FLUDARA [Suspect]
     Active Substance: FLUDARABINE PHOSPHATE
     Dosage: SECOND COURSE
     Route: 042
     Dates: start: 20160817
  23. BACTRIM [Suspect]
     Active Substance: SULFAMETHOXAZOLE\TRIMETHOPRIM
     Indication: PROPHYLAXIS
     Route: 048
     Dates: start: 20160719, end: 20160902
  24. EMEND [Suspect]
     Active Substance: APREPITANT
     Dosage: FIRST COURSE
     Route: 048
     Dates: start: 20160721, end: 20160721
  25. EMEND [Suspect]
     Active Substance: APREPITANT
     Dosage: SECOND COURSE
     Route: 048
     Dates: start: 20160817
  26. EMEND [Suspect]
     Active Substance: APREPITANT
     Dosage: SECOND COURSE
     Route: 048
     Dates: start: 20160818, end: 20160818
  27. SOLUPRED [Suspect]
     Active Substance: PREDNISOLONE
     Indication: PRODUCT USED FOR UNKNOWN INDICATION
     Dosage: FIRST COURSE
     Route: 048
     Dates: start: 20160719
  28. ENDOXAN 1000 MG, POUDRE POUR SOLUTION INJECTABLE [Suspect]
     Active Substance: CYCLOPHOSPHAMIDE
     Dosage: SECOND COURSE
     Route: 042
     Dates: start: 20160816
  29. ENDOXAN 1000 MG, POUDRE POUR SOLUTION INJECTABLE [Suspect]
     Active Substance: CYCLOPHOSPHAMIDE
     Dosage: SECOND COURSE
     Route: 042
     Dates: start: 20160817
  30. MABTHERA [Suspect]
     Active Substance: RITUXIMAB
     Indication: NON-HODGKIN^S LYMPHOMA
     Dosage: ONE INJECTION; FIRST COURSE
     Route: 042
     Dates: start: 20160719, end: 20160719
  31. EMEND [Suspect]
     Active Substance: APREPITANT
     Dosage: FIRST COURSE
     Route: 048
     Dates: start: 20160720
  32. SOLUPRED [Suspect]
     Active Substance: PREDNISOLONE
     Dosage: FIRST COURSE
     Route: 048
     Dates: start: 20160721, end: 20160721

REACTIONS (2)
  - Herpes zoster [Unknown]
  - Drug reaction with eosinophilia and systemic symptoms [Recovering/Resolving]

NARRATIVE: CASE EVENT DATE: 20160826
